FAERS Safety Report 21381797 (Version 1)
Quarter: 2022Q3

REPORT INFORMATION
  Report Type: Spontaneous
  Country: US (occurrence: None)
  Receive Date: 20220926
  Receipt Date: 20220926
  Transmission Date: 20221027
  Serious: Yes (Hospitalization)
  Sender: FDA-Public Use
  Company Number: None

PATIENT
  Age: 67 Year
  Sex: Female
  Weight: 63 kg

DRUGS (1)
  1. TRUXIMA [Suspect]
     Active Substance: RITUXIMAB-ABBS
     Dates: start: 20220916, end: 20220917

REACTIONS (6)
  - Body temperature increased [None]
  - Chills [None]
  - Hypotension [None]
  - Atrial fibrillation [None]
  - Cough [None]
  - Asthenia [None]

NARRATIVE: CASE EVENT DATE: 20220917
